FAERS Safety Report 7537390-7 (Version None)
Quarter: 2011Q2

REPORT INFORMATION
  Report Type: 
  Country: None (occurrence: None)
  Receive Date: 20110603
  Receipt Date: 20110518
  Transmission Date: 20111010
  Serious: Yes (Hospitalization)
  Sender: FDA-Public Use
  Company Number: 2011MA006068

PATIENT
  Age: 8 Month
  Sex: Male

DRUGS (1)
  1. HYDROCORTISONE 2.5% CREAM [Suspect]
     Dosage: 10.5 MG;QD;PO
     Route: 048

REACTIONS (7)
  - ANAEMIA [None]
  - SEPSIS [None]
  - NEUTROPHILIA [None]
  - LYMPHOPENIA [None]
  - THROMBOCYTOPENIA [None]
  - KLEBSIELLA BACTERAEMIA [None]
  - GASTROENTERITIS ROTAVIRUS [None]
